FAERS Safety Report 11110649 (Version 1)
Quarter: 2015Q2

REPORT INFORMATION
  Report Type: Spontaneous
  Country: BE (occurrence: BE)
  Receive Date: 20150513
  Receipt Date: 20150513
  Transmission Date: 20150821
  Serious: Yes (Life-Threatening, Other)
  Sender: FDA-Public Use
  Company Number: BE-TEVA-562082ISR

PATIENT
  Age: 40 Year
  Sex: Female
  Weight: 66 kg

DRUGS (5)
  1. LOSEC 40 MG [Concomitant]
     Indication: REFLUX LARYNGITIS
     Dosage: 80 MILLIGRAM DAILY;
     Route: 048
     Dates: start: 201412
  2. VITAMINE D [Concomitant]
  3. LEVOCETIRIZINE TEVA 5 MG [Suspect]
     Active Substance: LEVOCETIRIZINE
     Indication: HOUSE DUST ALLERGY
     Dosage: 5 MILLIGRAM DAILY; IN THE EVENING
     Route: 048
     Dates: start: 20150320, end: 20150326
  4. LEVOCETIRIZINE TEVA 5 MG [Suspect]
     Active Substance: LEVOCETIRIZINE
     Indication: SEASONAL ALLERGY
  5. LUEVA [Concomitant]
     Indication: CONTRACEPTION
     Route: 048
     Dates: start: 2000

REACTIONS (27)
  - Dyspnoea [Recovered/Resolved]
  - Heart rate increased [Recovered/Resolved]
  - Diarrhoea [Recovered/Resolved]
  - Wheezing [Recovered/Resolved]
  - Vision blurred [Recovered/Resolved]
  - Hyperhidrosis [Recovered/Resolved]
  - Syncope [Recovered/Resolved]
  - Feeling cold [Recovered/Resolved]
  - Hypotension [Recovered/Resolved]
  - Abdominal pain [Recovered/Resolved]
  - Speech disorder [Recovered/Resolved]
  - Chills [Recovered/Resolved]
  - Nausea [Recovered/Resolved]
  - Somnolence [Recovered/Resolved]
  - Crying [Recovered/Resolved]
  - Feeling abnormal [Recovered/Resolved]
  - Fatigue [Recovered/Resolved]
  - Headache [Recovered/Resolved]
  - Dysuria [Recovered/Resolved]
  - Respiratory disorder [Recovered/Resolved]
  - Chest discomfort [Recovered/Resolved]
  - Paraesthesia [Recovered/Resolved]
  - Swollen tongue [Recovered/Resolved]
  - Loss of consciousness [Recovered/Resolved]
  - Urinary retention [Recovered/Resolved]
  - Palpitations [Recovered/Resolved]
  - Tachycardia [Recovered/Resolved]

NARRATIVE: CASE EVENT DATE: 20150320
